FAERS Safety Report 25144294 (Version 1)
Quarter: 2025Q2

REPORT INFORMATION
  Report Type: Spontaneous
  Country: GB (occurrence: GB)
  Receive Date: 20250401
  Receipt Date: 20250401
  Transmission Date: 20250717
  Serious: Yes (Other)
  Sender: BOEHRINGER INGELHEIM
  Company Number: GB-Komodo Health-a23aa000006bufhAAA

PATIENT
  Age: 94 Year
  Sex: Female

DRUGS (2)
  1. LINAGLIPTIN [Suspect]
     Active Substance: LINAGLIPTIN
     Indication: Product used for unknown indication
  2. insulin (HUMULIN I) [Concomitant]
     Indication: Product used for unknown indication

REACTIONS (1)
  - Renal impairment [Not Recovered/Not Resolved]
